FAERS Safety Report 22132369 (Version 2)
Quarter: 2023Q1

REPORT INFORMATION
  Report Type: Report from Study
  Country: BR (occurrence: BR)
  Receive Date: 20230323
  Receipt Date: 20230331
  Transmission Date: 20230418
  Serious: Yes (Other)
  Sender: FDA-Public Use
  Company Number: BR-002147023-NVSC2023BR064483

PATIENT
  Sex: Male

DRUGS (2)
  1. BRINZOLAMIDE\TIMOLOL MALEATE [Suspect]
     Active Substance: BRINZOLAMIDE\TIMOLOL MALEATE
     Indication: Product used for unknown indication
     Dosage: UNK, BID (IN THE MORNING AND IN THE LATE AFTERNOON)
     Route: 065
  2. NAPHAZOLINE HYDROCHLORIDE\PHENIRAMINE MALEATE [Suspect]
     Active Substance: NAPHAZOLINE HYDROCHLORIDE\PHENIRAMINE MALEATE
     Indication: Product used for unknown indication
     Dosage: UNK
     Route: 065

REACTIONS (11)
  - Blindness unilateral [Not Recovered/Not Resolved]
  - Cataract [Unknown]
  - Glaucoma [Unknown]
  - Ophthalmic vascular thrombosis [Not Recovered/Not Resolved]
  - Intraocular pressure increased [Unknown]
  - Eye inflammation [Not Recovered/Not Resolved]
  - Pruritus [Not Recovered/Not Resolved]
  - Fatigue [Unknown]
  - Ocular hyperaemia [Unknown]
  - Drug ineffective [Unknown]
  - Dyspnoea [Unknown]
